FAERS Safety Report 23814347 (Version 1)
Quarter: 2024Q2

REPORT INFORMATION
  Report Type: Spontaneous
  Country: US (occurrence: US)
  Receive Date: 20240503
  Receipt Date: 20240503
  Transmission Date: 20240716
  Serious: No
  Sender: FDA-Public Use
  Company Number: US-BAYER-2024A059181

PATIENT
  Age: 17 Year
  Sex: Female

DRUGS (3)
  1. ESTRADIOL [Suspect]
     Active Substance: ESTRADIOL
     Indication: Premature menopause
     Dosage: UNK
  2. OLANZAPINE [Concomitant]
     Active Substance: OLANZAPINE
     Dosage: 5 MG
  3. PROGESTERONE (ORAL) [Concomitant]
     Route: 048

REACTIONS (2)
  - Off label use [None]
  - Drug effective for unapproved indication [None]
